FAERS Safety Report 4984522-0 (Version None)
Quarter: 2006Q2

REPORT INFORMATION
  Report Type: 
  Country: None (occurrence: None)
  Receive Date: 20060420
  Receipt Date: 20060407
  Transmission Date: 20061013
  Serious: Yes (Other)
  Sender: FDA-Public Use
  Company Number: HQWYE693007APR06

PATIENT
  Age: 50 Year
  Sex: Female

DRUGS (1)
  1. PREMELLE (CONJUGATED ESTROGENS/MEDROXYPROGESTERONE ACETATE, TABLET) [Suspect]
     Indication: HORMONE REPLACEMENT THERAPY
     Dosage: ORAL
     Route: 048

REACTIONS (1)
  - ERYTHEMA MULTIFORME [None]
